FAERS Safety Report 4603698-8 (Version None)
Quarter: 2005Q1

REPORT INFORMATION
  Report Type: 
  Country: None (occurrence: None)
  Receive Date: 20050310
  Receipt Date: 20050228
  Transmission Date: 20050727
  Serious: Yes (Hospitalization)
  Sender: FDA-Public Use
  Company Number: US-JNJFOC-20050300694

PATIENT
  Age: 50 Year
  Sex: Male

DRUGS (4)
  1. RISPERDAL [Suspect]
     Route: 049
  2. RISPERDAL [Suspect]
     Indication: SCHIZOAFFECTIVE DISORDER
     Route: 049
  3. RISPERDAL CONSTA [Suspect]
     Indication: SCHIZOAFFECTIVE DISORDER
     Route: 030
  4. LORAZEPAM [Concomitant]
     Route: 049

REACTIONS (4)
  - EYE PAIN [None]
  - HALLUCINATION [None]
  - HOSPITALISATION [None]
  - PANIC ATTACK [None]
